FAERS Safety Report 18728660 (Version 1)
Quarter: 2021Q1

REPORT INFORMATION
  Report Type: Spontaneous
  Country: US (occurrence: US)
  Receive Date: 20210112
  Receipt Date: 20210112
  Transmission Date: 20210419
  Serious: No
  Sender: FDA-Public Use
  Company Number: US-009507513-2101USA001623

PATIENT
  Age: 17 Year
  Sex: Female
  Weight: 61.22 kg

DRUGS (1)
  1. NEXPLANON [Suspect]
     Active Substance: ETONOGESTREL
     Indication: CONTRACEPTION
     Dosage: 1 IMPLANT IN UPPER LEFT ARM
     Route: 059
     Dates: start: 20170428, end: 20201010

REACTIONS (3)
  - Incorrect product administration duration [Unknown]
  - Menstruation delayed [Not Recovered/Not Resolved]
  - Muscle spasms [Not Recovered/Not Resolved]

NARRATIVE: CASE EVENT DATE: 2020
